FAERS Safety Report 25592177 (Version 1)
Quarter: 2025Q3

REPORT INFORMATION
  Report Type: Spontaneous
  Country: AU (occurrence: AU)
  Receive Date: 20250722
  Receipt Date: 20250722
  Transmission Date: 20251020
  Serious: Yes (Hospitalization)
  Sender: SANDOZ
  Company Number: None

PATIENT
  Age: 6 Decade
  Sex: Male

DRUGS (5)
  1. AZATHIOPRINE [Suspect]
     Active Substance: AZATHIOPRINE
     Indication: Chronic actinic dermatitis
     Dosage: 100 MG, QD
     Route: 065
     Dates: start: 2015, end: 2015
  2. CYCLOSPORINE [Suspect]
     Active Substance: CYCLOSPORINE
     Indication: Chronic actinic dermatitis
     Dosage: 200 MG, QD
     Route: 065
  3. METHOTREXATE [Suspect]
     Active Substance: METHOTREXATE
     Indication: Chronic actinic dermatitis
     Dosage: 20 MG, QW
     Route: 065
  4. MYCOPHENOLATE MOFETIL [Suspect]
     Active Substance: MYCOPHENOLATE MOFETIL
     Indication: Chronic actinic dermatitis
     Dosage: 4 G, QD
     Route: 065
     Dates: start: 201512, end: 202212
  5. PREDNISOLONE [Suspect]
     Active Substance: PREDNISOLONE
     Indication: Chronic actinic dermatitis
     Route: 065

REACTIONS (4)
  - Drug eruption [Unknown]
  - Drug ineffective for unapproved indication [Unknown]
  - Treatment failure [Unknown]
  - Off label use [Unknown]

NARRATIVE: CASE EVENT DATE: 20150101
